FAERS Safety Report 7204595-4 (Version None)
Quarter: 2010Q4

REPORT INFORMATION
  Report Type: 
  Country: None (occurrence: None)
  Receive Date: 20101230
  Receipt Date: 20101221
  Transmission Date: 20110411
  Serious: Yes (Hospitalization, Other)
  Sender: FDA-Public Use
  Company Number: US-MERCK-1001USA03820

PATIENT
  Age: 61 Year
  Sex: Female
  Weight: 64 kg

DRUGS (15)
  1. FOSAMAX [Suspect]
     Indication: OSTEOPOROSIS
     Route: 048
     Dates: start: 19980201, end: 20000801
  2. FOSAMAX [Suspect]
     Route: 048
     Dates: start: 20001201, end: 20010101
  3. FOSAMAX [Suspect]
     Route: 048
     Dates: start: 20010101
  4. FOSAMAX [Suspect]
     Route: 048
     Dates: start: 20010201
  5. FOSAMAX [Suspect]
     Route: 048
     Dates: start: 20010101, end: 20010401
  6. FOSAMAX [Suspect]
     Route: 048
     Dates: start: 20010501, end: 20051201
  7. FOSAMAX [Suspect]
     Indication: OSTEOPENIA
     Route: 048
     Dates: start: 19980201, end: 20000801
  8. FOSAMAX [Suspect]
     Route: 048
     Dates: start: 20001201, end: 20010101
  9. FOSAMAX [Suspect]
     Route: 048
     Dates: start: 20010101
  10. FOSAMAX [Suspect]
     Route: 048
     Dates: start: 20010201
  11. FOSAMAX [Suspect]
     Route: 048
     Dates: start: 20010101, end: 20010401
  12. FOSAMAX [Suspect]
     Route: 048
     Dates: start: 20010501, end: 20051201
  13. EVISTA [Concomitant]
     Route: 065
     Dates: start: 19991201, end: 20080101
  14. FOSAMAX PLUS D [Suspect]
     Indication: OSTEOPOROSIS
     Route: 048
     Dates: start: 20070801, end: 20080701
  15. FOSAMAX PLUS D [Suspect]
     Route: 048
     Dates: start: 20010401

REACTIONS (22)
  - ANXIETY [None]
  - ARTHRITIS [None]
  - BONE FORMATION DECREASED [None]
  - BRUXISM [None]
  - CARDIAC MURMUR [None]
  - DENTAL CARIES [None]
  - DEPRESSION [None]
  - DYSPEPSIA [None]
  - FALL [None]
  - FEMUR FRACTURE [None]
  - FOOT FRACTURE [None]
  - FRACTURE [None]
  - HAND FRACTURE [None]
  - HOT FLUSH [None]
  - HYPERCALCIURIA [None]
  - MITRAL VALVE PROLAPSE [None]
  - MYOSITIS OSSIFICANS [None]
  - OVERDOSE [None]
  - SINUS DISORDER [None]
  - TOOTH DISORDER [None]
  - TOOTH FRACTURE [None]
  - URINARY TRACT INFECTION [None]
